FAERS Safety Report 5126375-6 (Version None)
Quarter: 2006Q4

REPORT INFORMATION
  Report Type: 
  Country: None (occurrence: None)
  Receive Date: 20061010
  Receipt Date: 20060925
  Transmission Date: 20070319
  Serious: Yes (Other)
  Sender: FDA-Public Use
  Company Number: 2006S1007068

PATIENT
  Age: 68 Year
  Sex: Female

DRUGS (10)
  1. CELEXA [Suspect]
     Indication: ANXIETY
     Dosage: 10 MG; QD; PO
     Route: 048
     Dates: start: 20040101
  2. CELEXA [Suspect]
     Indication: DEPRESSION
     Dosage: 10 MG; QD; PO
     Route: 048
     Dates: start: 20040101
  3. METHOTREXATE [Suspect]
     Indication: RHEUMATOID ARTHRITIS
     Dosage: PO
     Route: 048
     Dates: end: 20060620
  4. METHOTREXATE [Suspect]
     Indication: RHEUMATOID ARTHRITIS
     Dosage: PO
     Route: 048
     Dates: start: 20060825
  5. CLOPIDOGREL [Concomitant]
  6. RAMIPRIL [Concomitant]
  7. LANSOPRAZOLE [Concomitant]
  8. METOPROLOL SUCCINATE [Concomitant]
  9. ATORVASTATIN CALCIUM [Concomitant]
  10. LORAZEPAM [Concomitant]

REACTIONS (2)
  - BLOOD AMYLASE INCREASED [None]
  - LIPASE INCREASED [None]
